FAERS Safety Report 5818959-4 (Version None)
Quarter: 2008Q3

REPORT INFORMATION
  Report Type: 
  Country: None (occurrence: None)
  Receive Date: 20080723
  Receipt Date: 20080714
  Transmission Date: 20090109
  Serious: Yes (Other)
  Sender: FDA-Public Use
  Company Number: FI-JNJFOC-20080703484

PATIENT
  Sex: Female

DRUGS (11)
  1. REMICADE [Suspect]
     Indication: RHEUMATOID ARTHRITIS
     Route: 042
  2. METHOTREXATE SODIUM [Concomitant]
  3. FOLIC ACID [Concomitant]
  4. PREDNISOLONE [Concomitant]
  5. PERINDOPRIL ERBUMINE [Concomitant]
  6. NEXIUM [Concomitant]
  7. KALCIPOS-D [Concomitant]
  8. CRESTOR [Concomitant]
  9. EMCONCOR [Concomitant]
  10. PRIMASPAN [Concomitant]
  11. UNSPECIFIED PREMEDICATION [Concomitant]
     Indication: PREMEDICATION

REACTIONS (3)
  - ANAPHYLACTOID REACTION [None]
  - FLANK PAIN [None]
  - SKIN REACTION [None]
